FAERS Safety Report 9518217 (Version 1)
Quarter: 2013Q1

REPORT INFORMATION
  Report Type: Spontaneous
  Country: US (occurrence: None)
  Receive Date: 20130305
  Receipt Date: 20130305
  Transmission Date: 20140127
  Serious: Yes (Other)
  Sender: FDA-Public Use
  Company Number: 163-21880-12070792

PATIENT
  Age: 69 Year
  Sex: Male
  Weight: 113.4 kg

DRUGS (12)
  1. REVLIMID (LENALIDOMIDE) [Suspect]
     Indication: PLASMA CELL MYELOMA
     Dosage: 15 MG, 21 IN 28 D, PO
     Route: 048
     Dates: start: 20120712
  2. AUGMENTIN [Suspect]
     Indication: EAR DISCOMFORT
     Dates: start: 20120707
  3. AMBIEN (ZOLPIDEM TARTRATE) [Concomitant]
  4. ASPIRIN(ACETYLSALICYLIC ACID) [Concomitant]
  5. ATENOLOL(ATENOLOL) [Concomitant]
  6. BENEFIBER(CYAMOPSIS TETRAGONOLOBA GUM) [Concomitant]
  7. COZAAR (LOSARTAN POTASSIUM) [Concomitant]
  8. DEXAMETHASONE [Concomitant]
  9. MIRALAX(MACROGOL) [Concomitant]
  10. NEXIUM(ESOMEPRAOLE) [Concomitant]
  11. SIMETHICONE(DIMETICONE) [Concomitant]
  12. ZOCOR(SIMVASTATIN) [Concomitant]

REACTIONS (5)
  - Paraesthesia [None]
  - Ear discomfort [None]
  - Tremor [None]
  - Abdominal distension [None]
  - Sinusitis [None]
